FAERS Safety Report 16444656 (Version 1)
Quarter: 2019Q3

REPORT INFORMATION
  Report Type: Spontaneous
  Country: US (occurrence: US)
  Receive Date: 20190618
  Receipt Date: 20190618
  Transmission Date: 20191004
  Serious: Yes (Death)
  Sender: FDA-Public Use
  Company Number: None

PATIENT
  Sex: Male

DRUGS (21)
  1. BENZONATATE. [Concomitant]
     Active Substance: BENZONATATE
  2. AMITIZA [Concomitant]
     Active Substance: LUBIPROSTONE
  3. LORAZEPAM. [Concomitant]
     Active Substance: LORAZEPAM
  4. AQUADEKS [Concomitant]
     Active Substance: MINERALS\VITAMINS
  5. CIPROFLOXACIN. [Concomitant]
     Active Substance: CIPROFLOXACIN
  6. FLUOROURACIL. [Concomitant]
     Active Substance: FLUOROURACIL
  7. TIZANIDINE. [Concomitant]
     Active Substance: TIZANIDINE
  8. MELOXICAM. [Concomitant]
     Active Substance: MELOXICAM
  9. URSODIOL. [Concomitant]
     Active Substance: URSODIOL
  10. ALBUTEROL. [Concomitant]
     Active Substance: ALBUTEROL
  11. MISOPROSTOL. [Concomitant]
     Active Substance: MISOPROSTOL
  12. ACCU-CHEK [Concomitant]
  13. HUMALOG [Concomitant]
     Active Substance: INSULIN LISPRO
  14. ZOLPIDEM [Concomitant]
     Active Substance: ZOLPIDEM TARTRATE
  15. ACETYLCYST [Concomitant]
  16. AZITHROMYCIN ANHYDROUS. [Concomitant]
     Active Substance: AZITHROMYCIN ANHYDROUS
  17. CREON [Concomitant]
     Active Substance: PANCRELIPASE AMYLASE\PANCRELIPASE LIPASE\PANCRELIPASE PROTEASE
  18. MIRTAZAPINE. [Concomitant]
     Active Substance: MIRTAZAPINE
  19. PULMOZYME [Suspect]
     Active Substance: DORNASE ALFA
     Indication: CYSTIC FIBROSIS
     Dosage: ?          OTHER ROUTE:INHALATION?
     Dates: start: 20190529
  20. PREDINISONE [Concomitant]
  21. PULMOZYME [Concomitant]
     Active Substance: DORNASE ALFA

REACTIONS (1)
  - Death [None]
